FAERS Safety Report 10048495 (Version 2)
Quarter: 2014Q2

REPORT INFORMATION
  Report Type: Spontaneous
  Country: US (occurrence: US)
  Receive Date: 20140331
  Receipt Date: 20140515
  Transmission Date: 20141212
  Serious: Yes (Death)
  Sender: FDA-Public Use
  Company Number: US-BRISTOL-MYERS SQUIBB COMPANY-20553038

PATIENT
  Sex: Male

DRUGS (2)
  1. ONGLYZA TABS [Suspect]
     Indication: TYPE 2 DIABETES MELLITUS
     Dosage: LAST DOSE:MAR12
     Dates: start: 20091124, end: 201203
  2. JANUVIA [Suspect]
     Indication: TYPE 2 DIABETES MELLITUS
     Dosage: LAST DOSE:MAR12
     Dates: start: 20070603, end: 200911

REACTIONS (1)
  - Pancreatic carcinoma [Fatal]
